FAERS Safety Report 13346689 (Version 1)
Quarter: 2017Q1

REPORT INFORMATION
  Report Type: Spontaneous
  Country: ES (occurrence: ES)
  Receive Date: 20170317
  Receipt Date: 20170317
  Transmission Date: 20170428
  Serious: Yes (Other)
  Sender: FDA-Public Use
  Company Number: ES-MYLANLABS-2017M1016765

PATIENT

DRUGS (2)
  1. CLONAZEPAM. [Suspect]
     Active Substance: CLONAZEPAM
     Indication: RAPID EYE MOVEMENT SLEEP BEHAVIOUR DISORDER
     Dosage: 0.5 MG BEDTIME
     Route: 065
  2. PAROXETINE. [Concomitant]
     Active Substance: PAROXETINE
     Indication: DEPRESSION
     Route: 065

REACTIONS (8)
  - Rebound effect [Recovered/Resolved]
  - Head injury [Recovered/Resolved]
  - Haemorrhage [Recovered/Resolved]
  - Rapid eye movement sleep behaviour disorder [Recovered/Resolved]
  - Subdural haematoma [Recovered/Resolved]
  - Withdrawal syndrome [Recovered/Resolved]
  - Fall [Recovered/Resolved]
  - Laceration [Recovered/Resolved]
